FAERS Safety Report 4614877-8 (Version None)
Quarter: 2005Q1

REPORT INFORMATION
  Report Type: 
  Country: None (occurrence: None)
  Receive Date: 20050322
  Receipt Date: 20050311
  Transmission Date: 20050727
  Serious: Yes (Other)
  Sender: FDA-Public Use
  Company Number: PHBS2005ES03687

PATIENT
  Age: 38 Year
  Sex: Female

DRUGS (4)
  1. GLEEVEC [Suspect]
     Indication: CHRONIC MYELOID LEUKAEMIA
     Dosage: 400 MG/DAY
     Route: 048
     Dates: start: 20050127, end: 20050211
  2. METHOTREXATE SODIUM [Concomitant]
  3. CYCLOPHOSPHAMIDE [Concomitant]
  4. DEXAMETHASONE [Concomitant]

REACTIONS (8)
  - BLOOD BILIRUBIN INCREASED [None]
  - HEPATITIS TOXIC [None]
  - ILEUS PARALYTIC [None]
  - LUNG INFILTRATION [None]
  - NEUROTOXICITY [None]
  - PLEURAL EFFUSION [None]
  - PULMONARY TOXICITY [None]
  - RESPIRATORY FAILURE [None]
